FAERS Safety Report 8550890-6 (Version None)
Quarter: 2012Q3

REPORT INFORMATION
  Report Type: 
  Country: None (occurrence: None)
  Receive Date: 20120730
  Receipt Date: 20120507
  Transmission Date: 20120928
  Serious: No
  Sender: FDA-Public Use
  Company Number: US-GLAXOSMITHKLINE-A0977059A

PATIENT
  Age: 57 Year
  Sex: Female

DRUGS (1)
  1. ZANTAC [Suspect]
     Indication: PRODUCT USED FOR UNKNOWN INDICATION
     Route: 065

REACTIONS (2)
  - SLEEP DISORDER [None]
  - NIGHTMARE [None]
